FAERS Safety Report 25985971 (Version 1)
Quarter: 2025Q4

REPORT INFORMATION
  Report Type: Spontaneous
  Country: EU (occurrence: EU)
  Receive Date: 20251031
  Receipt Date: 20251031
  Transmission Date: 20260118
  Serious: Yes (Hospitalization, Other)
  Sender: NOVARTIS
  Company Number: EU-002147023-NVSC2025HR165451

PATIENT
  Age: 66 Year
  Sex: Female

DRUGS (1)
  1. EVEROLIMUS [Suspect]
     Active Substance: EVEROLIMUS
     Indication: Lung neoplasm malignant
     Dosage: UNK
     Route: 065

REACTIONS (3)
  - Mitral valve incompetence [Recovering/Resolving]
  - Cardiomyopathy [Recovered/Resolved]
  - Off label use [Unknown]

NARRATIVE: CASE EVENT DATE: 20241001
